FAERS Safety Report 8306229-4 (Version None)
Quarter: 2012Q2

REPORT INFORMATION
  Report Type: 
  Country: None (occurrence: None)
  Receive Date: 20120423
  Receipt Date: 20120412
  Transmission Date: 20120825
  Serious: Yes (Hospitalization)
  Sender: FDA-Public Use
  Company Number: JP-ROCHE-1061433

PATIENT
  Age: 47 Year
  Sex: Female

DRUGS (3)
  1. EDARAVONE [Concomitant]
     Route: 042
     Dates: start: 20111229, end: 20111229
  2. ALTEPLASE [Suspect]
     Indication: EMBOLIC STROKE
     Route: 042
     Dates: start: 20111229, end: 20111229
  3. EDARAVONE [Concomitant]
     Route: 042
     Dates: start: 20111230, end: 20120105

REACTIONS (1)
  - VERTEBRAL ARTERY DISSECTION [None]
